FAERS Safety Report 8054051-9 (Version None)
Quarter: 2012Q1

REPORT INFORMATION
  Report Type: 
  Country: None (occurrence: None)
  Receive Date: 20120118
  Receipt Date: 20120111
  Transmission Date: 20120608
  Serious: Yes (Other)
  Sender: FDA-Public Use
  Company Number: US-US-EMD SERONO, INC.-233108J10USA

PATIENT
  Sex: Female

DRUGS (15)
  1. ALBUTEROL INHALER [Concomitant]
  2. PREVACID DR [Concomitant]
     Route: 048
  3. MULTI-VITAMINS [Concomitant]
     Route: 048
  4. SINGULAIR [Concomitant]
     Route: 048
  5. ENTOCORT EC [Concomitant]
     Route: 048
  6. REBIF [Suspect]
     Indication: MULTIPLE SCLEROSIS
     Route: 058
     Dates: start: 20090324
  7. ESTROVEN [Concomitant]
     Route: 048
  8. FELODIPINE [Concomitant]
     Route: 048
  9. MERCAPTOPURINE [Concomitant]
     Route: 048
  10. METOPROLOL [Concomitant]
     Route: 048
  11. PENTASA [Concomitant]
  12. SUPER B COMPLEX [Concomitant]
     Route: 048
  13. TYLENOL EX-STR [Concomitant]
  14. VITAMIN B-12 [Concomitant]
     Route: 048
  15. OSCAL [Concomitant]
     Route: 048

REACTIONS (6)
  - STRESS [None]
  - INJECTION SITE ERYTHEMA [None]
  - CROHN'S DISEASE [None]
  - AGITATION [None]
  - INFLUENZA LIKE ILLNESS [None]
  - DEPRESSION [None]
